FAERS Safety Report 7867382-X (Version None)
Quarter: 2011Q4

REPORT INFORMATION
  Report Type: 
  Country: None (occurrence: None)
  Receive Date: 20111028
  Receipt Date: 20111017
  Transmission Date: 20120403
  Serious: Yes (Other)
  Sender: FDA-Public Use
  Company Number: US-ALEXION-A201100170

PATIENT
  Sex: Male

DRUGS (7)
  1. SOLIRIS [Suspect]
     Indication: PAROXYSMAL NOCTURNAL HAEMOGLOBINURIA
     Dosage: UNK
     Route: 042
     Dates: start: 20091027
  2. SOLIRIS [Suspect]
     Dosage: 1200 MG, Q2W
     Route: 042
     Dates: start: 20100212
  3. SOLIRIS [Suspect]
     Dosage: 900 MG, Q2W
     Route: 042
  4. GLUCOSAMINE /CHOND                 /03040701/ [Concomitant]
     Dosage: UNK
     Route: 048
  5. FOLIC ACID [Concomitant]
     Dosage: UNK
     Route: 048
  6. WARFARIN SODIUM [Concomitant]
     Dosage: UNK
     Route: 048
  7. SOLIRIS [Suspect]
     Dosage: 1200 MG, UNK
     Route: 042

REACTIONS (5)
  - HAEMOLYSIS [None]
  - UPPER RESPIRATORY TRACT INFECTION [None]
  - BACK PAIN [None]
  - PNEUMONIA [None]
  - MUSCLE STRAIN [None]
